FAERS Safety Report 4364897-6 (Version None)
Quarter: 2004Q2

REPORT INFORMATION
  Report Type: 
  Country: None (occurrence: None)
  Receive Date: 20040526
  Receipt Date: 20040518
  Transmission Date: 20050107
  Serious: Yes (Hospitalization)
  Sender: FDA-Public Use
  Company Number: FR-BRISTOL-MYERS SQUIBB COMPANY-12589701

PATIENT
  Age: 83 Year
  Sex: Male

DRUGS (8)
  1. APROVEL TABS 150 MG [Suspect]
     Route: 048
     Dates: end: 20040109
  2. ALLOPURINOL TAB [Suspect]
     Route: 048
     Dates: start: 20031215, end: 20040109
  3. AMAREL [Concomitant]
     Dates: start: 19980615, end: 20040109
  4. COLCHICINE [Concomitant]
     Dates: start: 20031215, end: 20040109
  5. DIGITALINE NATIVELLE [Concomitant]
     Dates: start: 20030415, end: 20040109
  6. BURINEX [Concomitant]
     Dates: start: 20030815, end: 20040109
  7. PREVISCAN [Concomitant]
     Dosage: DATE AND DOSAGE NOT PROVIDED
  8. CARDENSIEL [Concomitant]
     Dosage: DATE AND DOSAGE NOT PROVIDED

REACTIONS (1)
  - STEVENS-JOHNSON SYNDROME [None]
